FAERS Safety Report 6667238-4 (Version None)
Quarter: 2010Q2

REPORT INFORMATION
  Report Type: 
  Country: None (occurrence: None)
  Receive Date: 20100401
  Receipt Date: 20100323
  Transmission Date: 20101027
  Serious: Yes (Life-Threatening, Other)
  Sender: FDA-Public Use
  Company Number: AMAG201000175

PATIENT
  Age: 46 Year
  Sex: Male

DRUGS (14)
  1. FERAHEME [Suspect]
     Indication: IRON DEFICIENCY ANAEMIA
     Dosage: 2ML,(60 MG) SINGLE, INTRAVENOUS;  4 ML, SINGLE (120 MG), INTRAVENOUS
     Route: 042
     Dates: start: 20100315, end: 20100315
  2. FERAHEME [Suspect]
     Indication: RENAL FAILURE CHRONIC
     Dosage: 2ML,(60 MG) SINGLE, INTRAVENOUS;  4 ML, SINGLE (120 MG), INTRAVENOUS
     Route: 042
     Dates: start: 20100315, end: 20100315
  3. FERAHEME [Suspect]
     Indication: IRON DEFICIENCY ANAEMIA
     Dosage: 2ML,(60 MG) SINGLE, INTRAVENOUS;  4 ML, SINGLE (120 MG), INTRAVENOUS
     Route: 042
     Dates: start: 20100317, end: 20100317
  4. FERAHEME [Suspect]
     Indication: RENAL FAILURE CHRONIC
     Dosage: 2ML,(60 MG) SINGLE, INTRAVENOUS;  4 ML, SINGLE (120 MG), INTRAVENOUS
     Route: 042
     Dates: start: 20100317, end: 20100317
  5. PLAVIX [Concomitant]
  6. FLUOXETINE (FLUOXETINE HYDROCHLORIDE), 10 MG [Concomitant]
  7. PHOSLO (CALCIUM ACETATE) TABLET, 367 MG [Concomitant]
  8. METOPROLOL TARTRATE [Concomitant]
  9. COUMADIN (WARFARIN SODIUM) TABLET, 5 MG [Concomitant]
  10. LISINOPRIL [Concomitant]
  11. QUESTRAN [Concomitant]
  12. PROTONIX [Concomitant]
  13. AMLODIPINE (AMLODIPINE MALEATE) TABLET [Concomitant]
  14. MINOXIDIL [Concomitant]

REACTIONS (7)
  - AGITATION [None]
  - CARDIO-RESPIRATORY ARREST [None]
  - FAECAL INCONTINENCE [None]
  - HYPERHIDROSIS [None]
  - HYPOTENSION [None]
  - RESPIRATORY ARREST [None]
  - UNRESPONSIVE TO STIMULI [None]
